FAERS Safety Report 13483765 (Version 4)
Quarter: 2017Q3

REPORT INFORMATION
  Report Type: Spontaneous
  Country: BG (occurrence: BG)
  Receive Date: 20170424
  Receipt Date: 20170804
  Transmission Date: 20171127
  Serious: Yes (Other)
  Sender: FDA-Public Use
  Company Number: BG-009507513-1704BGR011252

PATIENT
  Age: 62 Year
  Sex: Female

DRUGS (2)
  1. KEYTRUDA [Suspect]
     Active Substance: PEMBROLIZUMAB
     Dosage: UNK
     Dates: start: 20170803
  2. KEYTRUDA [Suspect]
     Active Substance: PEMBROLIZUMAB
     Indication: METASTATIC MALIGNANT MELANOMA
     Dosage: UNK

REACTIONS (4)
  - Polyarthritis [Not Recovered/Not Resolved]
  - Gout [Not Recovered/Not Resolved]
  - Petechiae [Unknown]
  - Basedow^s disease [Not Recovered/Not Resolved]
